FAERS Safety Report 16820904 (Version 1)
Quarter: 2019Q3

REPORT INFORMATION
  Report Type: Spontaneous
  Country: FR (occurrence: FR)
  Receive Date: 20190918
  Receipt Date: 20190918
  Transmission Date: 20191005
  Serious: Yes (Hospitalization)
  Sender: FDA-Public Use
  Company Number: FR-AUROBINDO-AUR-APL-2019-060695

PATIENT
  Age: 44 Year
  Sex: Male

DRUGS (6)
  1. VENLAFAXINE [Suspect]
     Active Substance: VENLAFAXINE HYDROCHLORIDE
     Indication: PSYCHOTIC DISORDER
     Dosage: 2 DOSAGE FORM
     Route: 048
     Dates: start: 20190827
  2. OLANZAPINE. [Suspect]
     Active Substance: OLANZAPINE
     Indication: PSYCHOTIC DISORDER
     Dosage: 30 MILLIGRAM
     Route: 048
     Dates: start: 20190827
  3. TRANXENE [Suspect]
     Active Substance: CLORAZEPATE DIPOTASSIUM
     Indication: PSYCHOTIC DISORDER
     Dosage: 60 MILLIGRAM
     Route: 048
     Dates: start: 20190827
  4. CETIRIZINE [Suspect]
     Active Substance: CETIRIZINE HYDROCHLORIDE
     Indication: PSYCHOTIC DISORDER
     Dosage: 30 MILLIGRAM
     Route: 048
     Dates: start: 20190827
  5. NOZINAN [Suspect]
     Active Substance: LEVOMEPROMAZINE
     Indication: PSYCHOTIC DISORDER
     Dosage: 125 MILLIGRAM
     Route: 048
     Dates: start: 20190827
  6. LORMETAZEPAM [Suspect]
     Active Substance: LORMETAZEPAM
     Indication: PSYCHOTIC DISORDER
     Dosage: 1 DOSAGE FORM
     Route: 048
     Dates: start: 20190827

REACTIONS (4)
  - Overdose [Recovered/Resolved]
  - Medication error [Recovered/Resolved]
  - Somnolence [Recovered/Resolved]
  - Inappropriate schedule of product administration [Recovered/Resolved]

NARRATIVE: CASE EVENT DATE: 20190827
